FAERS Safety Report 16750912 (Version 1)
Quarter: 2019Q3

REPORT INFORMATION
  Report Type: Spontaneous
  Country: HR (occurrence: HR)
  Receive Date: 20190828
  Receipt Date: 20190828
  Transmission Date: 20191005
  Serious: Yes (Hospitalization)
  Sender: FDA-Public Use
  Company Number: PHHY2019HR183154

PATIENT
  Age: 63 Year
  Sex: Male

DRUGS (1)
  1. CARBAMAZEPINE. [Suspect]
     Active Substance: CARBAMAZEPINE
     Indication: PRODUCT USED FOR UNKNOWN INDICATION
     Route: 065

REACTIONS (9)
  - Dermatitis exfoliative generalised [Unknown]
  - Conjunctivitis [Unknown]
  - Stevens-Johnson syndrome [Unknown]
  - Dysphagia [Unknown]
  - Erythema of eyelid [Unknown]
  - Ocular hyperaemia [Unknown]
  - Urticaria [Unknown]
  - Rash generalised [Unknown]
  - Pyrexia [Unknown]
